FAERS Safety Report 25342947 (Version 1)
Quarter: 2025Q2

REPORT INFORMATION
  Report Type: Spontaneous
  Country: US (occurrence: US)
  Receive Date: 20250521
  Receipt Date: 20250521
  Transmission Date: 20250717
  Serious: No
  Sender: AMGEN
  Company Number: US-AMGEN-USASP2025095776

PATIENT
  Age: 59 Year
  Sex: Female

DRUGS (1)
  1. PROLIA [Suspect]
     Active Substance: DENOSUMAB
     Indication: Product used for unknown indication
     Route: 058
     Dates: start: 20250326

REACTIONS (10)
  - Blood parathyroid hormone increased [Unknown]
  - Thyroid hormones increased [Unknown]
  - Blood calcium abnormal [Unknown]
  - Ill-defined disorder [Unknown]
  - Pain in jaw [Unknown]
  - Muscle twitching [Unknown]
  - Thyroid disorder [Recovered/Resolved]
  - Headache [Unknown]
  - Arthralgia [Unknown]
  - Muscle spasms [Unknown]

NARRATIVE: CASE EVENT DATE: 20250401
